FAERS Safety Report 21219646 (Version 1)
Quarter: 2022Q3

REPORT INFORMATION
  Report Type: Report from Study
  Country: CA (occurrence: CA)
  Receive Date: 20220817
  Receipt Date: 20220817
  Transmission Date: 20221026
  Serious: Yes (Other)
  Sender: FDA-Public Use
  Company Number: CA-NOVARTISPH-NVSC2022CA184871

PATIENT
  Sex: Male

DRUGS (1)
  1. HYRIMOZ [Suspect]
     Active Substance: ADALIMUMAB-ADAZ
     Indication: Crohn^s disease
     Dosage: 160 MG
     Route: 058
     Dates: start: 20220809

REACTIONS (5)
  - Rectal ulcer [Unknown]
  - Diarrhoea [Unknown]
  - Aphthous ulcer [Unknown]
  - Fatigue [Unknown]
  - Abdominal pain lower [Unknown]
